FAERS Safety Report 25199561 (Version 1)
Quarter: 2025Q2

REPORT INFORMATION
  Report Type: Spontaneous
  Country: US (occurrence: None)
  Receive Date: 20250415
  Receipt Date: 20250415
  Transmission Date: 20250717
  Serious: Yes (Disabling)
  Sender: FDA-CTU
  Company Number: None

PATIENT
  Age: 51 Year
  Sex: Female
  Weight: 92.7 kg

DRUGS (8)
  1. CILOSTAZOL [Suspect]
     Active Substance: CILOSTAZOL
     Indication: Peripheral arterial occlusive disease
     Dosage: OTHER QUANTITY : 2 TABLET(S);?FREQUENCY : TWICE A DAY;?
     Route: 048
     Dates: start: 20250306, end: 20250309
  2. PHENTERMINE [Concomitant]
     Active Substance: PHENTERMINE
  3. VENLAFAXINE [Concomitant]
     Active Substance: VENLAFAXINE HYDROCHLORIDE
  4. VITAMIN D NOS [Concomitant]
     Active Substance: CHOLECALCIFEROL\ERGOCALCIFEROL
  5. VITAMIN E [Concomitant]
     Active Substance: .ALPHA.-TOCOPHEROL
  6. VITAMIN K [Concomitant]
     Active Substance: PHYTONADIONE
  7. CALCIUM [Concomitant]
     Active Substance: CALCIUM
  8. TURKEY TAIL [Concomitant]

REACTIONS (4)
  - Palpitations [None]
  - Dizziness [None]
  - Headache [None]
  - Migraine [None]

NARRATIVE: CASE EVENT DATE: 20250306
